FAERS Safety Report 5522137-6 (Version None)
Quarter: 2007Q4

REPORT INFORMATION
  Report Type: 
  Country: None (occurrence: None)
  Receive Date: 20071120
  Receipt Date: 20071108
  Transmission Date: 20080405
  Serious: Yes (Hospitalization, Other)
  Sender: FDA-Public Use
  Company Number: US-PURDUE-USA_2007_0030119

PATIENT
  Sex: Female

DRUGS (5)
  1. MS CONTIN [Suspect]
     Indication: SPINAL OSTEOARTHRITIS
     Dates: end: 20070201
  2. OXYCONTIN [Suspect]
     Indication: SPINAL OSTEOARTHRITIS
     Dosage: UNK, SEE TEXT
  3. DIAZEPAM [Concomitant]
     Indication: DRUG USE FOR UNKNOWN INDICATION
  4. ESTROGEN [Concomitant]
  5. MOTRIN [Concomitant]

REACTIONS (7)
  - DENTAL CARIES [None]
  - DETOXIFICATION [None]
  - DRUG WITHDRAWAL SYNDROME [None]
  - MENTAL DISORDER [None]
  - PURULENT DISCHARGE [None]
  - SUICIDAL IDEATION [None]
  - VOMITING [None]
